FAERS Safety Report 5976051-2 (Version None)
Quarter: 2008Q4

REPORT INFORMATION
  Report Type: 
  Country: None (occurrence: None)
  Receive Date: 20081202
  Receipt Date: 20081120
  Transmission Date: 20090506
  Serious: Yes (Hospitalization, Disabling, Other)
  Sender: FDA-Public Use
  Company Number: US-ROCHE-575286

PATIENT
  Sex: Male
  Weight: 80.7 kg

DRUGS (12)
  1. LARIAM [Suspect]
     Indication: MALARIA PROPHYLAXIS
     Route: 048
     Dates: start: 20080101, end: 20080229
  2. UNKNOWN BP MEDICINE [Concomitant]
     Indication: BLOOD PRESSURE
  3. ARTHRITIS MEDICATION NOS [Concomitant]
     Indication: ARTHRITIS
  4. NAPROXEN [Concomitant]
     Route: 048
  5. HYDROCHLOROTHIAZIDE [Concomitant]
     Indication: HYPERTENSION
     Route: 048
     Dates: start: 20071101
  6. ENALAPRIL MALEATE [Concomitant]
     Indication: HYPERTENSION
     Route: 048
     Dates: start: 20071101
  7. TRAMADOL HCL [Concomitant]
     Route: 048
     Dates: end: 20080701
  8. ASPIRIN [Concomitant]
     Route: 048
     Dates: start: 19981101
  9. HEPARIN [Concomitant]
  10. ATIVAN [Concomitant]
     Dosage: FREQUENCY: 1 MG Q.H.S
  11. SEROQUEL [Concomitant]
  12. PAXIL [Concomitant]

REACTIONS (17)
  - AGITATION [None]
  - ARTHRALGIA [None]
  - CHEST PAIN [None]
  - CONFUSIONAL STATE [None]
  - CONSTIPATION [None]
  - CONVERSION DISORDER [None]
  - DEAFNESS [None]
  - DEPRESSION [None]
  - DYSPHAGIA [None]
  - DYSPNOEA EXERTIONAL [None]
  - HEADACHE [None]
  - MANIA [None]
  - MENTAL DISORDER [None]
  - POOR QUALITY SLEEP [None]
  - SCAB [None]
  - SUICIDAL IDEATION [None]
  - WEIGHT DECREASED [None]
